FAERS Safety Report 6489140-3 (Version None)
Quarter: 2009Q4

REPORT INFORMATION
  Report Type: 
  Country: None (occurrence: None)
  Receive Date: 20091210
  Receipt Date: 20091023
  Transmission Date: 20100525
  Serious: No
  Sender: FDA-Public Use
  Company Number: US-AMGEN-KDL365980

PATIENT
  Sex: Female

DRUGS (1)
  1. ENBREL [Suspect]
     Indication: ANKYLOSING SPONDYLITIS
     Route: 058
     Dates: start: 20090807

REACTIONS (4)
  - ANKYLOSING SPONDYLITIS [None]
  - ARTHRALGIA [None]
  - FEELING ABNORMAL [None]
  - INCORRECT STORAGE OF DRUG [None]
